FAERS Safety Report 16053249 (Version 2)
Quarter: 2019Q1

REPORT INFORMATION
  Report Type: Spontaneous
  Country: JP (occurrence: JP)
  Receive Date: 20190308
  Receipt Date: 20190320
  Transmission Date: 20190418
  Serious: Yes (Other)
  Sender: FDA-Public Use
  Company Number: JP-ASTRAZENECA-2018SF42448

PATIENT
  Age: 825 Month
  Sex: Male
  Weight: 55 kg

DRUGS (5)
  1. MINOMYCIN [Concomitant]
     Active Substance: MINOCYCLINE HYDROCHLORIDE
     Indication: RASH
     Route: 048
     Dates: start: 20180808
  2. DEPAKENE-R [Concomitant]
     Active Substance: VALPROATE SODIUM
     Indication: SEIZURE PROPHYLAXIS
     Route: 048
     Dates: start: 20170811
  3. TAGRISSO [Suspect]
     Active Substance: OSIMERTINIB
     Indication: NON-SMALL CELL LUNG CANCER
     Route: 048
     Dates: start: 20180901, end: 20181024
  4. IRESSA [Suspect]
     Active Substance: GEFITINIB
     Indication: NON-SMALL CELL LUNG CANCER
     Route: 048
     Dates: start: 20170803, end: 20180831
  5. ELCATONIN [Concomitant]
     Active Substance: ELCATONIN
     Indication: OSTEOPOROSIS
     Route: 030
     Dates: start: 20181001, end: 20181016

REACTIONS (8)
  - Compression fracture [Recovering/Resolving]
  - Decreased appetite [Recovered/Resolved]
  - Interstitial lung disease [Not Recovered/Not Resolved]
  - Rash [Unknown]
  - Hand fracture [Recovering/Resolving]
  - Metastases to central nervous system [Unknown]
  - Fall [Unknown]
  - Pyrexia [Recovered/Resolved]

NARRATIVE: CASE EVENT DATE: 201806
